FAERS Safety Report 8126034-1 (Version None)
Quarter: 2012Q1

REPORT INFORMATION
  Report Type: 
  Country: None (occurrence: None)
  Receive Date: 20120209
  Receipt Date: 20120201
  Transmission Date: 20120608
  Serious: Yes (Hospitalization)
  Sender: FDA-Public Use
  Company Number: US-CELGENEUS-163-21880-11121334

PATIENT
  Sex: Female

DRUGS (6)
  1. DEXILANT [Concomitant]
     Route: 065
  2. REVLIMID [Suspect]
     Dosage: 25 MILLIGRAM
     Route: 048
     Dates: start: 20111201, end: 20111205
  3. REVLIMID [Suspect]
     Dosage: 5 MILLIGRAM
     Route: 048
  4. FUROSEMIDE [Concomitant]
     Route: 065
  5. METOPROLOL TARTRATE [Concomitant]
     Route: 065
  6. DEXAMETHASONE [Concomitant]
     Route: 065

REACTIONS (6)
  - HYPOTENSION [None]
  - ATRIAL FIBRILLATION [None]
  - DRUG INTOLERANCE [None]
  - PNEUMONIA [None]
  - RENAL DISORDER [None]
  - BRAIN NATRIURETIC PEPTIDE INCREASED [None]
